FAERS Safety Report 11772973 (Version 1)
Quarter: 2015Q4

REPORT INFORMATION
  Report Type: Spontaneous
  Country: US (occurrence: None)
  Receive Date: 20151124
  Receipt Date: 20151124
  Transmission Date: 20160304
  Serious: No
  Sender: FDA-Public Use
  Company Number: None

PATIENT
  Age: 52 Year
  Sex: Female

DRUGS (1)
  1. ENOXAPARIN 120/0.8 [Suspect]
     Active Substance: ENOXAPARIN
     Dosage: 120/0.8 INJECTABLE

REACTIONS (1)
  - Injection site haemorrhage [None]

NARRATIVE: CASE EVENT DATE: 20151120
